FAERS Safety Report 4400618-6 (Version None)
Quarter: 2004Q3

REPORT INFORMATION
  Report Type: 
  Country: None (occurrence: None)
  Receive Date: 20040715
  Receipt Date: 20040715
  Transmission Date: 20050211
  Serious: No
  Sender: FDA-Public Use
  Company Number: None

PATIENT
  Age: 75 Year
  Sex: Male
  Weight: 85.7298 kg

DRUGS (1)
  1. TAXOL [Suspect]

REACTIONS (1)
  - COMPLICATION OF DEVICE REMOVAL [None]
